FAERS Safety Report 21684555 (Version 1)
Quarter: 2022Q4

REPORT INFORMATION
  Report Type: Spontaneous
  Country: CN (occurrence: CN)
  Receive Date: 20221205
  Receipt Date: 20221205
  Transmission Date: 20230113
  Serious: Yes (Other)
  Sender: FDA-Public Use
  Company Number: CN-PFIZER INC-PV202200115877

PATIENT
  Age: 25 Year
  Sex: Female
  Weight: 80 kg

DRUGS (1)
  1. HEMABATE [Suspect]
     Active Substance: CARBOPROST TROMETHAMINE
     Indication: Postpartum haemorrhage
     Dosage: 250 UG, 1X/DAY
     Dates: start: 20221129, end: 20221129

REACTIONS (2)
  - Dry mouth [Recovering/Resolving]
  - Pruritus [Recovering/Resolving]

NARRATIVE: CASE EVENT DATE: 20221129
